FAERS Safety Report 9441215 (Version 1)
Quarter: 2013Q3

REPORT INFORMATION
  Report Type: Spontaneous
  Country: US (occurrence: US)
  Receive Date: 20130805
  Receipt Date: 20130805
  Transmission Date: 20140515
  Serious: Yes (Hospitalization)
  Sender: FDA-Public Use
  Company Number: US-ABBOTT-13P-163-1125607-00

PATIENT
  Age: 58 Year
  Sex: Male
  Weight: 99.43 kg

DRUGS (2)
  1. HUMIRA [Suspect]
     Indication: RHEUMATOID ARTHRITIS
     Dates: start: 2011, end: 2013
  2. HUMIRA [Suspect]
     Dates: start: 2013

REACTIONS (8)
  - Nasal oedema [Not Recovered/Not Resolved]
  - Lip swelling [Not Recovered/Not Resolved]
  - Erythema [Not Recovered/Not Resolved]
  - Rhinalgia [Not Recovered/Not Resolved]
  - Dyspnoea [Not Recovered/Not Resolved]
  - Staphylococcal infection [Not Recovered/Not Resolved]
  - Hypertension [Not Recovered/Not Resolved]
  - Cellulitis [Recovered/Resolved]
